FAERS Safety Report 25336484 (Version 1)
Quarter: 2025Q2

REPORT INFORMATION
  Report Type: Spontaneous
  Country: US (occurrence: US)
  Receive Date: 20250520
  Receipt Date: 20250520
  Transmission Date: 20250716
  Serious: No
  Sender: LUNDBECK
  Company Number: US-LUNDBECK-DKLU4014564

PATIENT
  Age: 8 Month
  Sex: Male

DRUGS (2)
  1. SABRIL [Suspect]
     Active Substance: VIGABATRIN
     Indication: Infantile spasms
     Dosage: 8 MILLILITRE
     Route: 048
  2. SABRIL [Suspect]
     Active Substance: VIGABATRIN
     Dosage: 6 MILLILITRE
     Route: 048

REACTIONS (1)
  - Somnolence [Unknown]
